FAERS Safety Report 13415335 (Version 1)
Quarter: 2017Q2

REPORT INFORMATION
  Report Type: Spontaneous
  Country: US (occurrence: US)
  Receive Date: 20170407
  Receipt Date: 20170407
  Transmission Date: 20170830
  Serious: Yes (Hospitalization, Other)
  Sender: FDA-Public Use
  Company Number: US-TEVA-757524USA

PATIENT
  Sex: Female

DRUGS (1)
  1. CARTIA XT [Suspect]
     Active Substance: DILTIAZEM HYDROCHLORIDE
     Route: 065
     Dates: start: 201609

REACTIONS (7)
  - Arthropathy [Unknown]
  - Malaise [Recovering/Resolving]
  - Vomiting [Recovering/Resolving]
  - Burning sensation [Unknown]
  - Product odour abnormal [Unknown]
  - Bacterial infection [Unknown]
  - Pyrexia [Recovering/Resolving]

NARRATIVE: CASE EVENT DATE: 2017
